FAERS Safety Report 11221142 (Version 1)
Quarter: 2015Q2

REPORT INFORMATION
  Report Type: Spontaneous
  Country: US (occurrence: None)
  Receive Date: 20150625
  Receipt Date: 20150625
  Transmission Date: 20150821
  Serious: Yes (Other)
  Sender: FDA-Public Use
  Company Number: None

PATIENT
  Age: 48 Year
  Sex: Female
  Weight: 54.43 kg

DRUGS (5)
  1. ROPINIROL 3MG HERITAGE PHARMA [Suspect]
     Active Substance: ROPINIROLE HYDROCHLORIDE
     Indication: RESTLESS LEGS SYNDROME
     Route: 048
  2. TRAMADOL [Concomitant]
     Active Substance: TRAMADOL
  3. MAGNESIUM [Concomitant]
     Active Substance: MAGNESIUM
  4. MULTI VITAMIN [Concomitant]
     Active Substance: VITAMINS
  5. B2 [Concomitant]

REACTIONS (2)
  - Nausea [None]
  - Vomiting [None]

NARRATIVE: CASE EVENT DATE: 20150624
